FAERS Safety Report 20155748 (Version 2)
Quarter: 2022Q1

REPORT INFORMATION
  Report Type: Spontaneous
  Country: US (occurrence: US)
  Receive Date: 20211207
  Receipt Date: 20220211
  Transmission Date: 20220423
  Serious: Yes (Other)
  Sender: FDA-Public Use
  Company Number: US-NOVARTISPH-NVSC2021US276602

PATIENT
  Sex: Male

DRUGS (1)
  1. ENTRESTO [Suspect]
     Active Substance: SACUBITRIL\VALSARTAN
     Indication: Left ventricular failure
     Dosage: 49/ 51
     Route: 065

REACTIONS (5)
  - Left ventricular failure [Unknown]
  - Angina pectoris [Unknown]
  - Condition aggravated [Unknown]
  - Chest pain [Unknown]
  - Cough [Unknown]
